FAERS Safety Report 11880654 (Version 2)
Quarter: 2016Q1

REPORT INFORMATION
  Report Type: Spontaneous
  Country: PL (occurrence: PL)
  Receive Date: 20151230
  Receipt Date: 20160115
  Transmission Date: 20160526
  Serious: Yes (Life-Threatening, Other)
  Sender: FDA-Public Use
  Company Number: PL-GILEAD-2015-0189889

PATIENT
  Age: 58 Year
  Sex: Male
  Weight: 57 kg

DRUGS (1)
  1. TENOFOVIR DISOPROXIL FUMARATE. [Suspect]
     Active Substance: TENOFOVIR DISOPROXIL FUMARATE
     Indication: CHRONIC HEPATITIS B
     Dosage: 245 MG, UNK
     Route: 048
     Dates: start: 20141216, end: 20151106

REACTIONS (3)
  - Viral load increased [Recovering/Resolving]
  - Hepatic failure [Recovering/Resolving]
  - Drug ineffective [Recovering/Resolving]

NARRATIVE: CASE EVENT DATE: 201501
